FAERS Safety Report 6269173-2 (Version None)
Quarter: 2009Q3

REPORT INFORMATION
  Report Type: 
  Country: None (occurrence: None)
  Receive Date: 20090715
  Receipt Date: 20090703
  Transmission Date: 20100115
  Serious: Yes (Other)
  Sender: FDA-Public Use
  Company Number: JP-PFIZER INC-2009237367

PATIENT
  Age: 83 Year

DRUGS (3)
  1. ZYVOX [Suspect]
     Indication: STAPHYLOCOCCAL INFECTION
     Dosage: 1200 MG, 1X/DAY
     Route: 048
     Dates: start: 20090410, end: 20090423
  2. ZYVOX [Suspect]
     Dosage: 1200 MG, 1X/DAY
     Route: 048
     Dates: start: 20090525, end: 20090607
  3. AMARYL [Suspect]
     Indication: DIABETES MELLITUS
     Route: 048

REACTIONS (1)
  - HYPOGLYCAEMIA [None]
